FAERS Safety Report 18037788 (Version 1)
Quarter: 2020Q3

REPORT INFORMATION
  Report Type: Spontaneous
  Country: JP (occurrence: JP)
  Receive Date: 20200717
  Receipt Date: 20200717
  Transmission Date: 20201103
  Serious: Yes (Hospitalization)
  Sender: FDA-Public Use
  Company Number: JP-ELI_LILLY_AND_COMPANY-JP202007005406

PATIENT
  Age: 70 Year
  Sex: Male
  Weight: 64.9 kg

DRUGS (7)
  1. TAKECAB [Concomitant]
     Active Substance: VONOPRAZAN FUMARATE
     Dosage: UNK
     Dates: start: 20190807
  2. ALIMTA [Suspect]
     Active Substance: PEMETREXED DISODIUM
     Indication: NON-SMALL CELL LUNG CANCER
     Dosage: 700 MG, CYCLICAL
     Route: 041
     Dates: start: 20190816, end: 20190912
  3. CALONAL [Concomitant]
     Active Substance: ACETAMINOPHEN
     Dosage: 500 MG, QID
     Dates: start: 20190815
  4. CARBOPLATIN. [Suspect]
     Active Substance: CARBOPLATIN
     Indication: NON-SMALL CELL LUNG CANCER
     Dosage: 350 MG, CYCLICAL
     Route: 041
     Dates: start: 20190816, end: 20190912
  5. PANVITAN [ASCORBIC ACID;CALCIUM PANTOTHENATE; [Concomitant]
     Dosage: UNK
     Dates: start: 20190814
  6. KEYTRUDA [Suspect]
     Active Substance: PEMBROLIZUMAB
     Indication: NON-SMALL CELL LUNG CANCER
     Dosage: 200 MG, CYCLICAL
     Route: 041
     Dates: start: 20190816, end: 20190912
  7. MAGMITT [Concomitant]
     Active Substance: MAGNESIUM OXIDE
     Dosage: UNK
     Dates: start: 20190807

REACTIONS (1)
  - Tubulointerstitial nephritis [Recovering/Resolving]

NARRATIVE: CASE EVENT DATE: 20191003
